FAERS Safety Report 15294922 (Version 1)
Quarter: 2018Q3

REPORT INFORMATION
  Report Type: Spontaneous
  Country: DE (occurrence: DE)
  Receive Date: 20180820
  Receipt Date: 20180820
  Transmission Date: 20181010
  Serious: Yes (Congenital Anomaly)
  Sender: FDA-Public Use
  Company Number: DE-ALLERGAN-1840394US

PATIENT
  Age: 1 Day
  Sex: Male
  Weight: 3.24 kg

DRUGS (7)
  1. METOPROLOL. [Suspect]
     Active Substance: METOPROLOL
     Indication: MATERNAL EXPOSURE TIMING UNSPECIFIED
     Dosage: 71.25 MG, QD (47.5?0?23.75 MG/D )
     Route: 064
     Dates: start: 20170428, end: 20180215
  2. PARACETAMOL [Concomitant]
     Active Substance: ACETAMINOPHEN
     Indication: MIGRAINE
     Dosage: 200 MG, QD (1?2 G/D IF REQUIRED)
     Route: 064
     Dates: start: 20170428, end: 20180215
  3. CLEXANE [Concomitant]
     Active Substance: ENOXAPARIN SODIUM
     Indication: THROMBOSIS PROPHYLAXIS
     Dosage: 120 MG, QD (DOSAGE INCREASE TO 2 X 60 MG/D)
     Route: 064
  4. ESCITALOPRAM OXALATE ? BP [Suspect]
     Active Substance: ESCITALOPRAM OXALATE
     Indication: MATERNAL EXPOSURE TIMING UNSPECIFIED
     Dosage: 5 MG, QD
     Route: 064
     Dates: start: 20170518, end: 20180215
  5. IBUPROFEN. [Concomitant]
     Active Substance: IBUPROFEN
     Indication: MIGRAINE
     Dosage: 600 MG, QD (IF REQUIERED)
     Route: 064
  6. CLEXANE [Concomitant]
     Active Substance: ENOXAPARIN SODIUM
     Dosage: 40 MG, QD
     Route: 064
  7. AMITRIPTYLINE?FORM?UNKNOWN [Suspect]
     Active Substance: AMITRIPTYLINE
     Indication: MATERNAL EXPOSURE TIMING UNSPECIFIED
     Dosage: 37.5 MG, QD
     Route: 064
     Dates: start: 20170518, end: 20180215

REACTIONS (2)
  - Fallot^s tetralogy [Not Recovered/Not Resolved]
  - Atrial septal defect [Not Recovered/Not Resolved]

NARRATIVE: CASE EVENT DATE: 20180215
